FAERS Safety Report 17291298 (Version 3)
Quarter: 2020Q2

REPORT INFORMATION
  Report Type: Report from Study
  Country: CA (occurrence: CA)
  Receive Date: 20200121
  Receipt Date: 20200609
  Transmission Date: 20200713
  Serious: Yes (Other)
  Sender: FDA-Public Use
  Company Number: CA-ASTRAZENECA-2019SE49956

PATIENT
  Age: 14062 Day
  Sex: Female

DRUGS (11)
  1. CAMBIA [Concomitant]
     Active Substance: DICLOFENAC POTASSIUM
  2. ZOPICLONE [Concomitant]
     Active Substance: ZOPICLONE
  3. SUMATRIPTAN. [Concomitant]
     Active Substance: SUMATRIPTAN
  4. BIAXIN [Concomitant]
     Active Substance: CLARITHROMYCIN
  5. PULMICORT TURBUHALER [Concomitant]
     Active Substance: BUDESONIDE
  6. NUCALA [Concomitant]
     Active Substance: MEPOLIZUMAB
     Dates: end: 20181107
  7. SERTRALINE [Concomitant]
     Active Substance: SERTRALINE HYDROCHLORIDE
  8. PREDNISONE. [Concomitant]
     Active Substance: PREDNISONE
     Route: 048
  9. FASENRA [Suspect]
     Active Substance: BENRALIZUMAB
     Indication: ASTHMA
     Dosage: 30.0MG UNKNOWN
     Route: 058
     Dates: start: 20181205, end: 20200526
  10. PANTOPRAZOLE [Concomitant]
     Active Substance: PANTOPRAZOLE
  11. SYMBICORT [Concomitant]
     Active Substance: BUDESONIDE\FORMOTEROL FUMARATE DIHYDRATE
     Dosage: 10 MG -PUFFS TWICE DAILY OR PRN AFTERNOON

REACTIONS (5)
  - Asthma [Not Recovered/Not Resolved]
  - Drug ineffective [Not Recovered/Not Resolved]
  - Wheezing [Unknown]
  - Blood pressure increased [Recovered/Resolved]
  - Dyspnoea [Unknown]

NARRATIVE: CASE EVENT DATE: 20190320
